FAERS Safety Report 5244966-9 (Version None)
Quarter: 2007Q1

REPORT INFORMATION
  Report Type: 
  Country: None (occurrence: None)
  Receive Date: 20070221
  Receipt Date: 20070221
  Transmission Date: 20070707
  Serious: Yes (Hospitalization, Disabling)
  Sender: FDA-Public Use
  Company Number: None

PATIENT
  Sex: Male
  Weight: 95.2554 kg

DRUGS (4)
  1. GLEEVEC [Suspect]
     Indication: ACUTE MYELOID LEUKAEMIA
     Dosage: 400 MG BID PO
     Route: 048
     Dates: start: 20070113, end: 20070129
  2. GLEEVEC [Suspect]
     Indication: CHROMOSOME ANALYSIS ABNORMAL
     Dosage: 400 MG BID PO
     Route: 048
     Dates: start: 20070113, end: 20070129
  3. GLEEVEC [Suspect]
     Indication: ACUTE MYELOID LEUKAEMIA
     Dosage: 400 MG BID PO
     Route: 048
     Dates: start: 20070203, end: 20070205
  4. GLEEVEC [Suspect]
     Indication: CHROMOSOME ANALYSIS ABNORMAL
     Dosage: 400 MG BID PO
     Route: 048
     Dates: start: 20070203, end: 20070205

REACTIONS (3)
  - BLOOD CREATININE INCREASED [None]
  - HAEMODIALYSIS [None]
  - URINE OUTPUT DECREASED [None]
